FAERS Safety Report 10600773 (Version 1)
Quarter: 2014Q4

REPORT INFORMATION
  Report Type: Spontaneous
  Country: US (occurrence: None)
  Receive Date: 20141121
  Receipt Date: 20141121
  Transmission Date: 20150529
  Serious: Yes (Hospitalization)
  Sender: FDA-Public Use
  Company Number: None

PATIENT
  Age: 59 Year
  Sex: Male

DRUGS (1)
  1. ZOLEDRONIC ACID [Suspect]
     Active Substance: ZOLEDRONIC ACID
     Indication: OSTEOPOROSIS
     Route: 042
     Dates: start: 201205

REACTIONS (4)
  - Cerebral hygroma [None]
  - Pachymeningitis [None]
  - Photosensitivity reaction [None]
  - Meningitis chemical [None]

NARRATIVE: CASE EVENT DATE: 20120501
